FAERS Safety Report 9118362 (Version 3)
Quarter: 2013Q2

REPORT INFORMATION
  Report Type: Spontaneous
  Country: GB (occurrence: None)
  Receive Date: 20130128
  Receipt Date: 20130403
  Transmission Date: 20140414
  Serious: Yes (Other)
  Sender: FDA-Public Use
  Company Number: AUR-APL-2013-00934

PATIENT
  Sex: Male

DRUGS (1)
  1. CIPROFLOXACIN (CIPROFLOXACIN) [Suspect]
     Indication: PROSTATITIS
     Dosage: 1000 MG  (500 MG, 2 IN 1 D), UNKNOWN?
     Route: 048
     Dates: start: 20121019, end: 20121020

REACTIONS (13)
  - Tendonitis [None]
  - Gait disturbance [None]
  - Arthritis [None]
  - Myalgia [None]
  - Malaise [None]
  - Nausea [None]
  - Fatigue [None]
  - Headache [None]
  - Musculoskeletal stiffness [None]
  - Arthralgia [None]
  - Muscle twitching [None]
  - Candida infection [None]
  - Quality of life decreased [None]
